FAERS Safety Report 25540727 (Version 1)
Quarter: 2025Q3

REPORT INFORMATION
  Report Type: Spontaneous
  Country: US (occurrence: US)
  Receive Date: 20250710
  Receipt Date: 20250710
  Transmission Date: 20251021
  Serious: No
  Sender: NOVARTIS
  Company Number: US-002147023-NVSC2025US109099

PATIENT

DRUGS (1)
  1. NETSPOT [Suspect]
     Active Substance: GALLIUM OXODOTREOTIDE GA-68
     Indication: Product used for unknown indication
     Route: 065
     Dates: start: 20250707

REACTIONS (1)
  - Incorrect dose administered [Unknown]
